FAERS Safety Report 25676674 (Version 1)
Quarter: 2025Q3

REPORT INFORMATION
  Report Type: Spontaneous
  Country: US (occurrence: None)
  Receive Date: 20250813
  Receipt Date: 20250813
  Transmission Date: 20251021
  Serious: No
  Sender: FDA-CTU
  Company Number: None

PATIENT
  Age: 67 Year
  Sex: Female
  Weight: 60 kg

DRUGS (13)
  1. DUPIXENT [Suspect]
     Active Substance: DUPILUMAB
     Indication: Asthma
     Route: 058
     Dates: start: 20250801, end: 20250801
  2. DUPIXENT [Suspect]
     Active Substance: DUPILUMAB
     Indication: Chronic obstructive pulmonary disease
  3. ALBUTEROL 0.083% VIALS (2.5MG/3MLS) [Concomitant]
  4. ABILIFY [Concomitant]
     Active Substance: ARIPIPRAZOLE
  5. BREO ELLIPTA 100-25 MG [Concomitant]
  6. BREO ELLIPTA 100-25 MG [Concomitant]
  7. WELLBUTRIN XL [Concomitant]
     Active Substance: BUPROPION HYDROCHLORIDE
  8. DIAZEPAM [Concomitant]
     Active Substance: DIAZEPAM
  9. DICLOFENAC 1 % GEL [Concomitant]
  10. NORCO 7.5 MG TABLETS [Concomitant]
  11. ZOLOFT 100 MG TABLETS [Concomitant]
  12. ZTLIDO 1.8% PATCHES [Concomitant]
  13. ITOPIRAMATE [Concomitant]

REACTIONS (5)
  - Arthralgia [None]
  - Condition aggravated [None]
  - Sciatica [None]
  - Peripheral swelling [None]
  - Swelling face [None]

NARRATIVE: CASE EVENT DATE: 20250804
